FAERS Safety Report 10569488 (Version 1)
Quarter: 2014Q4

REPORT INFORMATION
  Report Type: Report from Study
  Country: US (occurrence: US)
  Receive Date: 20141106
  Receipt Date: 20141106
  Transmission Date: 20150529
  Serious: Yes (Congenital Anomaly)
  Sender: FDA-Public Use
  Company Number: US-B.I. PHARMACEUTICALS,INC./RIDGEFIELD-2014-BI-52774BI

PATIENT
  Sex: Female
  Weight: 2.09 kg

DRUGS (6)
  1. RITONAVIR. [Concomitant]
     Active Substance: RITONAVIR
     Indication: EXPOSURE DURING PREGNANCY
     Route: 064
  2. VIRAMUNE [Suspect]
     Active Substance: NEVIRAPINE
     Indication: EXPOSURE DURING PREGNANCY
     Route: 064
  3. ZIDOVUDINE. [Concomitant]
     Active Substance: ZIDOVUDINE
     Indication: EXPOSURE DURING PREGNANCY
     Route: 064
  4. SAQUINAVIR MESYLATE [Concomitant]
     Active Substance: SAQUINAVIR MESYLATE
     Indication: EXPOSURE DURING PREGNANCY
     Route: 064
  5. TENOFOVIR DISOPROXIL FUMARATE [Concomitant]
     Active Substance: TENOFOVIR DISOPROXIL FUMARATE
     Indication: EXPOSURE DURING PREGNANCY
     Route: 064
  6. LAMIVUDINE. [Concomitant]
     Active Substance: LAMIVUDINE
     Indication: EXPOSURE DURING PREGNANCY
     Route: 064

REACTIONS (4)
  - Premature baby [Unknown]
  - Congenital knee dislocation [Unknown]
  - Low birth weight baby [Unknown]
  - Congenital limb hyperextension [Unknown]
